FAERS Safety Report 5049399-6 (Version None)
Quarter: 2006Q3

REPORT INFORMATION
  Report Type: 
  Country: None (occurrence: None)
  Receive Date: 20060706
  Receipt Date: 20060630
  Transmission Date: 20061208
  Serious: Yes (Death, Hospitalization, Other)
  Sender: FDA-Public Use
  Company Number: 200610307BVD

PATIENT
  Age: 78 Year
  Sex: Male
  Weight: 71 kg

DRUGS (16)
  1. SORAFENIB [Suspect]
     Indication: HEPATIC NEOPLASM MALIGNANT
     Dosage: 400 MG, BID, ORAL
     Route: 048
     Dates: start: 20051128, end: 20060203
  2. ZANTAC [Concomitant]
  3. DOCITON [Concomitant]
  4. TIKLYD [Concomitant]
  5. FALKAMIN [Concomitant]
  6. LACTULOSE [Concomitant]
  7. BERLINSULIN [INSULIN HUMAN INJECTION, ISOPHANE] [Concomitant]
  8. BASALINSULIN [Concomitant]
  9. PANTOZOL [Concomitant]
  10. KONAKION [Concomitant]
  11. NOVALGIN [Concomitant]
  12. PASPERTIN [METOCLOPRAMIDE HYDROCHLORIDE] [Concomitant]
  13. KABIVEN [Concomitant]
  14. SODIUM CHLORIDE [Concomitant]
  15. DORMICUM [Concomitant]
  16. NATRIUMCARBONAT [Concomitant]

REACTIONS (8)
  - ABDOMINAL ADHESIONS [None]
  - ARTERIAL OCCLUSIVE DISEASE [None]
  - BLOOD BILIRUBIN INCREASED [None]
  - BLOOD LACTATE DEHYDROGENASE INCREASED [None]
  - FIBRIN D DIMER INCREASED [None]
  - INTESTINAL ISCHAEMIA [None]
  - MULTI-ORGAN FAILURE [None]
  - PLATELET COUNT DECREASED [None]
